FAERS Safety Report 14626224 (Version 6)
Quarter: 2018Q3

REPORT INFORMATION
  Report Type: Report from Study
  Country: PL (occurrence: PL)
  Receive Date: 20180312
  Receipt Date: 20180806
  Transmission Date: 20181010
  Serious: Yes (Hospitalization, Other)
  Sender: FDA-Public Use
  Company Number: PL-ROCHE-2085739

PATIENT
  Age: 72 Year
  Sex: Male
  Weight: 100 kg

DRUGS (18)
  1. FUROSEMID [Concomitant]
     Active Substance: FUROSEMIDE
     Route: 048
     Dates: start: 20180222
  2. KALIPOZ [Concomitant]
     Active Substance: POTASSIUM CHLORIDE
     Route: 048
  3. TORAMIDE [Concomitant]
     Route: 048
  4. DORETA [Concomitant]
     Active Substance: ACETAMINOPHEN\TRAMADOL HYDROCHLORIDE
     Route: 048
     Dates: start: 20180222
  5. NITRENDYPINA [Concomitant]
     Active Substance: NITRENDIPINE
     Route: 048
  6. ATORIS [Concomitant]
     Active Substance: ATORVASTATIN CALCIUM
     Route: 048
  7. PRIMACOR (POLAND) [Concomitant]
     Route: 048
     Dates: start: 201804
  8. ATEZOLIZUMAB. [Suspect]
     Active Substance: ATEZOLIZUMAB
     Indication: RENAL CELL CARCINOMA
     Dosage: DATE OF MOST RECENT DOSE PRIOR TO AE ONSET 01/FEB/2018, START TIME 15:40
     Route: 042
     Dates: start: 20171108
  9. TRIPLIXAM [Concomitant]
     Active Substance: AMLODIPINE BESYLATE\INDAPAMIDE\PERINDOPRIL ARGININE
     Route: 048
  10. POTAZEK [Concomitant]
     Dosage: 1 CAPSULE
     Route: 048
     Dates: start: 201804
  11. DICOFLOR [Concomitant]
     Active Substance: LACTOBACILLUS RHAMNOSUS
     Route: 048
     Dates: start: 201804, end: 20180505
  12. ACARD [Concomitant]
     Active Substance: ASPIRIN
     Route: 048
  13. NOVOMIX [Concomitant]
     Active Substance: INSULIN ASPART
     Route: 058
     Dates: start: 20180418
  14. FUROSEMID [Concomitant]
     Active Substance: FUROSEMIDE
     Route: 048
  15. MAJAMIL [Concomitant]
     Route: 048
  16. MESOPRAL [Concomitant]
     Route: 048
     Dates: start: 201804
  17. TARTRIAKSON [Concomitant]
     Active Substance: CEFTRIAXONE SODIUM
     Route: 065
     Dates: start: 201804, end: 20180426
  18. BETO ZK [Concomitant]
     Active Substance: METOPROLOL SUCCINATE
     Route: 048
     Dates: start: 201804

REACTIONS (2)
  - Urosepsis [Recovered/Resolved]
  - Nephritis [Recovering/Resolving]

NARRATIVE: CASE EVENT DATE: 20180305
